FAERS Safety Report 4415881-5 (Version None)
Quarter: 2004Q3

REPORT INFORMATION
  Report Type: 
  Country: None (occurrence: None)
  Receive Date: 20040805
  Receipt Date: 20040426
  Transmission Date: 20050211
  Serious: No
  Sender: FDA-Public Use
  Company Number: US-GLAXOSMITHKLINE-A0508424A

PATIENT
  Age: 40 Year
  Sex: Female

DRUGS (3)
  1. AVANDAMET [Suspect]
     Route: 048
  2. LASIX [Concomitant]
  3. LISINOPRIL [Concomitant]

REACTIONS (1)
  - POLLAKIURIA [None]
